FAERS Safety Report 23883900 (Version 1)
Quarter: 2024Q2

REPORT INFORMATION
  Report Type: Spontaneous
  Country: JP (occurrence: JP)
  Receive Date: 20240522
  Receipt Date: 20240522
  Transmission Date: 20240716
  Serious: Yes (Other)
  Sender: FDA-Public Use
  Company Number: JP-JNJFOC-20240561116

PATIENT
  Age: 70 Year
  Sex: Male

DRUGS (1)
  1. HALOMONTH [Suspect]
     Active Substance: HALOPERIDOL DECANOATE
     Indication: Schizophrenia
     Dosage: DOSE UNKNOWN
     Route: 030

REACTIONS (3)
  - Cerebral infarction [Unknown]
  - Epilepsy [Unknown]
  - Fall [Unknown]
